FAERS Safety Report 6247827-1 (Version None)
Quarter: 2009Q2

REPORT INFORMATION
  Report Type: 
  Country: None (occurrence: None)
  Receive Date: 20090626
  Receipt Date: 20090526
  Transmission Date: 20091009
  Serious: No
  Sender: FDA-Public Use
  Company Number: US-BAYER-200917409NA

PATIENT
  Age: 80 Year
  Sex: Female

DRUGS (1)
  1. AVELOX [Suspect]
     Indication: PNEUMONIA

REACTIONS (6)
  - DEHYDRATION [None]
  - DIARRHOEA [None]
  - FALL [None]
  - LACERATION [None]
  - NAUSEA [None]
  - VOMITING [None]
